FAERS Safety Report 4874259-0 (Version None)
Quarter: 2006Q1

REPORT INFORMATION
  Report Type: 
  Country: None (occurrence: None)
  Receive Date: 20060106
  Receipt Date: 20051229
  Transmission Date: 20060701
  Serious: Yes (Hospitalization, Disabling)
  Sender: FDA-Public Use
  Company Number: US-MERCK-0512USA04087

PATIENT
  Age: 66 Year
  Sex: Male
  Weight: 94 kg

DRUGS (1)
  1. VIOXX [Suspect]
     Indication: BACK PAIN
     Route: 048
     Dates: start: 20030204, end: 20041004

REACTIONS (3)
  - ARRHYTHMIA [None]
  - HERNIA [None]
  - TRANSIENT ISCHAEMIC ATTACK [None]
